FAERS Safety Report 10190561 (Version 1)
Quarter: 2014Q2

REPORT INFORMATION
  Report Type: Spontaneous
  Country: US (occurrence: US)
  Receive Date: 20140523
  Receipt Date: 20140523
  Transmission Date: 20141212
  Serious: Yes (Hospitalization)
  Sender: FDA-Public Use
  Company Number: PHEH2014US009885

PATIENT
  Sex: Female

DRUGS (25)
  1. TEGRETOL [Suspect]
     Indication: CONVULSION
     Dosage: 800 MG, PER DAY
  2. DIAZEPAM [Suspect]
     Indication: CONVULSION
     Dosage: UNK UKN, UNK
  3. KEPPRA [Suspect]
     Indication: CONVULSION
     Dosage: UNK UKN, UNK
  4. LAMICTAL [Suspect]
     Indication: CONVULSION
     Dosage: 12.5 MG, UNK
     Route: 048
     Dates: start: 200611, end: 20061214
  5. IMITREX ^GLAXO^ [Suspect]
     Indication: MIGRAINE
     Dosage: INJECTION AS REQUIRED
     Route: 058
  6. IMITREX ^GLAXO^ [Suspect]
     Dosage: AEROUS SPRAY
     Route: 006
  7. PHENOXYMETHYLPENICILLIN POTASSIUM [Suspect]
     Dosage: UNK UKN, UNK
  8. PHENOBARBITONE [Suspect]
     Dosage: UNK UKN, UNK
  9. ZONEGRAN [Concomitant]
     Dosage: UNK UKN, UNK
  10. LIPITOR [Concomitant]
     Dosage: UNK UKN, UNK
  11. COZAAR [Concomitant]
     Dosage: UNK UKN, UNK
  12. POTASSIUM [Concomitant]
     Dosage: UNK UKN, UNK
  13. COENZYME Q10 [Concomitant]
     Dosage: UNK UKN, UNK
  14. ATIVAN [Concomitant]
     Dosage: UNK UKN, UNK
  15. ALEVE [Concomitant]
     Dosage: UNK UKN, UNK
  16. VALIUM [Concomitant]
     Dosage: UNK UKN, UNK
  17. VITAMIN D [Concomitant]
     Dosage: UNK UKN, UNK
  18. CALCITRIOL [Concomitant]
     Dosage: UNK UKN, UNK
  19. CALCIUM [Concomitant]
     Dosage: UNK UKN, UNK
  20. VITAMIN B12 [Concomitant]
     Dosage: UNK UKN, UNK
  21. LORAZEPAM [Concomitant]
     Dosage: UNK UKN, UNK
  22. ASCORBIC ACID [Concomitant]
     Dosage: UNK UKN, UNK
  23. LYSINE [Concomitant]
     Dosage: UNK UKN, UNK
  24. MELATONIN [Concomitant]
     Dosage: UNK UKN, UNK
  25. MAGNESIUM [Concomitant]
     Dosage: UNK UKN, UNK

REACTIONS (26)
  - Angina pectoris [Unknown]
  - Pain in jaw [Unknown]
  - Oral discomfort [Unknown]
  - Gait disturbance [Unknown]
  - Limb injury [Unknown]
  - Nerve injury [Unknown]
  - Ear injury [Unknown]
  - Swollen tongue [Unknown]
  - Gingival discolouration [Unknown]
  - Tooth discolouration [Unknown]
  - Bone disorder [Unknown]
  - Bone loss [Unknown]
  - Abnormal behaviour [Unknown]
  - Chest pain [Unknown]
  - Anxiety [Unknown]
  - Weight decreased [Unknown]
  - Rash generalised [Unknown]
  - Drug hypersensitivity [Unknown]
  - Paraesthesia oral [Unknown]
  - Pruritus [Unknown]
  - Agitation [Unknown]
  - Weight increased [Unknown]
  - Rash [Unknown]
  - Dyspnoea [Unknown]
  - Nausea [Unknown]
  - Convulsion [Unknown]
